FAERS Safety Report 8195856-3 (Version None)
Quarter: 2012Q1

REPORT INFORMATION
  Report Type: 
  Country: None (occurrence: None)
  Receive Date: 20120308
  Receipt Date: 20100531
  Transmission Date: 20120608
  Serious: Yes (Hospitalization)
  Sender: FDA-Public Use
  Company Number: PHHY2010AU093611

PATIENT
  Sex: Female

DRUGS (3)
  1. ZOLEDRONOC ACID [Suspect]
     Dosage: 5 MG, SECOND INFUSION INCOMPLETE
     Dates: start: 20100531
  2. ZOLEDRONOC ACID [Suspect]
     Dosage: 5 MG, THIRD INFUSION, COMPLETE
     Route: 042
     Dates: start: 20100807
  3. ZOLEDRONOC ACID [Suspect]
     Dosage: 5 MG, FIRST INFUSION
     Route: 042
     Dates: start: 20090420

REACTIONS (2)
  - MALAISE [None]
  - INFUSION SITE EXTRAVASATION [None]
